FAERS Safety Report 10235094 (Version 2)
Quarter: 2014Q2

REPORT INFORMATION
  Report Type: Spontaneous
  Country: US (occurrence: US)
  Receive Date: 20140613
  Receipt Date: 20140613
  Transmission Date: 20141212
  Serious: No
  Sender: FDA-Public Use
  Company Number: US-ASTRAZENECA-2011SE55361

PATIENT
  Age: 64 Year
  Sex: Female
  Weight: 83.9 kg

DRUGS (13)
  1. NEXIUM [Suspect]
     Indication: ULCER
     Route: 048
     Dates: start: 2011
  2. NEXIUM [Suspect]
     Indication: ULCER
     Route: 048
     Dates: start: 2011
  3. FENTANYL [Concomitant]
     Indication: BACK PAIN
     Dosage: 50 MG EVERY OTHER DAY
     Route: 061
     Dates: start: 2009
  4. PRECOCET [Concomitant]
     Indication: PAIN
     Dosage: 5 OR 10 MG3/DAY PRN
     Dates: start: 2009
  5. ESTRIADOL [Concomitant]
     Indication: HORMONE REPLACEMENT THERAPY
     Dates: start: 2013
  6. FUROSEMIDE [Concomitant]
     Indication: DIURETIC THERAPY
     Dates: start: 2013
  7. GABAPENTIN [Concomitant]
     Indication: NEUROPATHY PERIPHERAL
     Dosage: 600MG/4 DAY DAILY
  8. EFFEXOR XR [Concomitant]
     Indication: DEPRESSION
     Dates: start: 2014
  9. CLONAZEPAM [Concomitant]
     Indication: FEELING ABNORMAL
     Dates: start: 2013
  10. OXYBUTYNIN CHLORIDE [Concomitant]
     Indication: BLADDER DISORDER
     Dates: start: 2006
  11. BACLOFEN [Concomitant]
     Indication: MUSCLE RELAXANT THERAPY
     Dosage: 10 MG 3-4/DAY PRN
     Dates: start: 2009
  12. VIT B12 OTC [Concomitant]
     Dosage: DAILY
  13. OTC POTASSIUM [Concomitant]
     Dosage: DAILY

REACTIONS (7)
  - Peroneal nerve palsy [Not Recovered/Not Resolved]
  - Scoliosis [Not Recovered/Not Resolved]
  - Weight decreased [Not Recovered/Not Resolved]
  - Abdominal discomfort [Not Recovered/Not Resolved]
  - Off label use [Not Recovered/Not Resolved]
  - Off label use [Not Recovered/Not Resolved]
  - Drug dose omission [Not Recovered/Not Resolved]
